FAERS Safety Report 23290691 (Version 1)
Quarter: 2023Q4

REPORT INFORMATION
  Report Type: Spontaneous
  Country: US (occurrence: US)
  Receive Date: 20231213
  Receipt Date: 20231213
  Transmission Date: 20240109
  Serious: No
  Sender: FDA-Public Use
  Company Number: US-BIOGEN-2021BI00991565

PATIENT
  Age: 57 Year
  Sex: Female

DRUGS (2)
  1. TECFIDERA [Suspect]
     Active Substance: DIMETHYL FUMARATE
     Indication: Relapsing-remitting multiple sclerosis
     Dosage: STARTING DOSE
     Route: 050
     Dates: start: 20180622, end: 201906
  2. TECFIDERA [Suspect]
     Active Substance: DIMETHYL FUMARATE
     Dosage: MAINTENANCE DOSE
     Route: 050
     Dates: start: 202002, end: 202012

REACTIONS (11)
  - Treatment noncompliance [Unknown]
  - Electric shock sensation [Not Recovered/Not Resolved]
  - Multiple sclerosis relapse [Unknown]
  - Back pain [Unknown]
  - Facial pain [Recovered/Resolved]
  - Swelling face [Recovered/Resolved]
  - Skin burning sensation [Recovered/Resolved]
  - Pruritus [Unknown]
  - Hot flush [Recovered/Resolved]
  - Erythema [Recovered/Resolved]
  - Burning sensation [Recovered/Resolved]

NARRATIVE: CASE EVENT DATE: 20190901
